FAERS Safety Report 19441326 (Version 1)
Quarter: 2021Q2

REPORT INFORMATION
  Report Type: Spontaneous
  Country: US (occurrence: US)
  Receive Date: 20210618
  Receipt Date: 20210618
  Transmission Date: 20210717
  Serious: Yes (Other)
  Sender: FDA-Public Use
  Company Number: None

PATIENT
  Age: 66 Year
  Sex: Male
  Weight: 63 kg

DRUGS (6)
  1. METFORMIN [Concomitant]
     Active Substance: METFORMIN HYDROCHLORIDE
  2. GLIPZIDE [Concomitant]
     Active Substance: GLIPIZIDE
  3. LOSARDAN [Concomitant]
  4. COMBIGAN [Suspect]
     Active Substance: BRIMONIDINE TARTRATE\TIMOLOL MALEATE
     Indication: PRODUCT USED FOR UNKNOWN INDICATION
     Route: 047
     Dates: start: 20210512, end: 20210512
  5. INSULIN [Concomitant]
     Active Substance: INSULIN NOS
  6. ATORVASTATIN [Concomitant]
     Active Substance: ATORVASTATIN

REACTIONS (4)
  - Lacrimation increased [None]
  - Eye pain [None]
  - Eye swelling [None]
  - Vision blurred [None]

NARRATIVE: CASE EVENT DATE: 20210512
